FAERS Safety Report 5474095-0 (Version None)
Quarter: 2007Q3

REPORT INFORMATION
  Report Type: 
  Country: None (occurrence: None)
  Receive Date: 20070928
  Receipt Date: 20070928
  Transmission Date: 20080115
  Serious: No
  Sender: FDA-Public Use
  Company Number: None

PATIENT
  Age: 59 Year
  Sex: Female
  Weight: 83.0083 kg

DRUGS (11)
  1. PROZAC [Suspect]
     Indication: DEPRESSION
     Dosage: 20 MG BID PO
     Route: 048
     Dates: start: 20070215
  2. PROZAC [Suspect]
     Indication: PAIN
     Dosage: 20 MG BID PO
     Route: 048
     Dates: start: 20070215
  3. LANTUS [Concomitant]
  4. BYETTA [Concomitant]
  5. LIPITOR [Concomitant]
  6. COZAAR [Concomitant]
  7. HYDROCHLOROTHIAZIDE [Concomitant]
  8. ASPIRIN [Concomitant]
  9. CELEBREX [Concomitant]
  10. COREG [Concomitant]
  11. TOPROL-XL [Concomitant]

REACTIONS (1)
  - PAIN [None]
